FAERS Safety Report 5739318-9 (Version None)
Quarter: 2008Q2

REPORT INFORMATION
  Report Type: 
  Country: None (occurrence: None)
  Receive Date: 20080515
  Receipt Date: 20080509
  Transmission Date: 20081010
  Serious: Yes (Congenital Anomaly, Other)
  Sender: FDA-Public Use
  Company Number: GB-ABBOTT-08P-167-0451485-00

PATIENT
  Sex: Male

DRUGS (1)
  1. VALPROIC ACID [Suspect]
     Indication: DRUG EXPOSURE DURING PREGNANCY
     Route: 064

REACTIONS (25)
  - ABNORMAL PALMAR/PLANTAR CREASES [None]
  - APGAR SCORE LOW [None]
  - ASOCIAL BEHAVIOUR [None]
  - AUTISM [None]
  - CONGENITAL NOSE MALFORMATION [None]
  - DEFORMITY OF ORBIT [None]
  - DEVELOPMENTAL DELAY [None]
  - DRUG EXPOSURE DURING PREGNANCY [None]
  - DYSMORPHISM [None]
  - EXPRESSIVE LANGUAGE DISORDER [None]
  - FOETAL ANTICONVULSANT SYNDROME [None]
  - FOETAL GROWTH RETARDATION [None]
  - HYPOKINESIA [None]
  - HYPOTONIA NEONATAL [None]
  - HYPOXIC ENCEPHALOPATHY [None]
  - JOINT INSTABILITY [None]
  - LEARNING DISORDER [None]
  - LIP DISORDER [None]
  - MYOPIA [None]
  - NEONATAL RESPIRATORY DISTRESS SYNDROME [None]
  - PROMINENT EPICANTHAL FOLDS [None]
  - PSYCHOMOTOR SKILLS IMPAIRED [None]
  - REFRACTION DISORDER [None]
  - SPEECH DISORDER DEVELOPMENTAL [None]
  - STRABISMUS CONGENITAL [None]
